FAERS Safety Report 16337829 (Version 1)
Quarter: 2019Q2

REPORT INFORMATION
  Report Type: Spontaneous
  Country: US (occurrence: US)
  Receive Date: 20190416
  Receipt Date: 20190416
  Transmission Date: 20190711
  Serious: No
  Sender: FDA-Public Use
  Company Number: None

PATIENT
  Age: 75 Year
  Sex: Female
  Weight: 75.3 kg

DRUGS (26)
  1. SPIRONOLACTONE. [Concomitant]
     Active Substance: SPIRONOLACTONE
  2. CRANBERRY. [Concomitant]
     Active Substance: CRANBERRY
  3. AMINO COMPLETE [Concomitant]
  4. VITAMIN C [Concomitant]
     Active Substance: ASCORBIC ACID
  5. OMEGA Q PLUS RESVERATROL [Concomitant]
  6. TRIPLE IODINE COMPLEX [Concomitant]
  7. ASPIRIN. [Concomitant]
     Active Substance: ASPIRIN
  8. MIRABEGRON [Concomitant]
     Active Substance: MIRABEGRON
  9. SAM-E [Concomitant]
     Active Substance: ADEMETIONINE
  10. ESTRO8PN [Concomitant]
  11. ULTRA TRIPLE ACTION JOINT HEALTH [Concomitant]
  12. CEYLON CINNAMON [Concomitant]
  13. ESTRADIOL. [Concomitant]
     Active Substance: ESTRADIOL
  14. METOPROLOL ER SUCCINATE [Concomitant]
     Active Substance: METOPROLOL SUCCINATE
  15. BIOTIN [Concomitant]
     Active Substance: BIOTIN
  16. GINGER ROOT [Concomitant]
     Active Substance: GINGER
  17. CAL MAG D [Concomitant]
  18. ACIDOPHILUS PLUS FOS [Concomitant]
  19. IRON FOLIC [Concomitant]
  20. VITAMIN D3 [Concomitant]
     Active Substance: CHOLECALCIFEROL
  21. ALBUTEROL. [Concomitant]
     Active Substance: ALBUTEROL
  22. VITAMIN B12 [Concomitant]
     Active Substance: CYANOCOBALAMIN
  23. SYMBICORT [Suspect]
     Active Substance: BUDESONIDE\FORMOTEROL FUMARATE DIHYDRATE
     Indication: ASTHMA
     Dosage: ?          QUANTITY:2 DF DOSAGE FORM;?
     Route: 048
     Dates: start: 20190328, end: 20190403
  24. POTASSIUM GLUCONATE [Concomitant]
     Active Substance: POTASSIUM GLUCONATE
  25. PLANT STEROLS [Concomitant]
  26. FIBER [Concomitant]
     Active Substance: PSYLLIUM HUSK

REACTIONS (5)
  - Sinusitis [None]
  - Abdominal pain upper [None]
  - Glossodynia [None]
  - Oropharyngeal pain [None]
  - Gingival pain [None]

NARRATIVE: CASE EVENT DATE: 20190401
